FAERS Safety Report 9032590 (Version 1)
Quarter: 2013Q1

REPORT INFORMATION
  Report Type: Spontaneous
  Country: DE (occurrence: None)
  Receive Date: 20130109
  Receipt Date: 20130109
  Transmission Date: 20140127
  Serious: Yes (Other)
  Sender: FDA-Public Use
  Company Number: AUR-APL-2013-00008

PATIENT
  Age: 37 Year
  Sex: Female
  Weight: 83 kg

DRUGS (1)
  1. SERTRALINE (SERTRALINE) (SERTRALINE) [Suspect]
     Indication: MAJOR DEPRESSION

REACTIONS (4)
  - Caesarean section [None]
  - Premature rupture of membranes [None]
  - Premature delivery [None]
  - Exposure during pregnancy [None]
